FAERS Safety Report 14322620 (Version 3)
Quarter: 2018Q3

REPORT INFORMATION
  Report Type: Spontaneous
  Country: JP (occurrence: JP)
  Receive Date: 20171225
  Receipt Date: 20180831
  Transmission Date: 20181010
  Serious: Yes (Other)
  Sender: FDA-Public Use
  Company Number: PHJP2017JP037222

PATIENT
  Age: 80 Year
  Sex: Female

DRUGS (2)
  1. VOTRIENT [Suspect]
     Active Substance: PAZOPANIB HYDROCHLORIDE
     Indication: SOFT TISSUE SARCOMA
     Dosage: 600 MG, QD
     Route: 048
  2. OPDIVO [Suspect]
     Active Substance: NIVOLUMAB
     Indication: SOFT TISSUE SARCOMA
     Dosage: UNK
     Route: 042

REACTIONS (5)
  - Multi-organ disorder [Recovering/Resolving]
  - Coagulopathy [Recovering/Resolving]
  - Pyrexia [Recovered/Resolved]
  - General physical health deterioration [Unknown]
  - Disseminated intravascular coagulation [Recovered/Resolved]
